FAERS Safety Report 7678192-0 (Version None)
Quarter: 2011Q3

REPORT INFORMATION
  Report Type: 
  Country: None (occurrence: None)
  Receive Date: 20110811
  Receipt Date: 20090909
  Transmission Date: 20111222
  Serious: Yes (Other)
  Sender: FDA-Public Use
  Company Number: US-BAYER-200931763NA

PATIENT
  Age: 34 Year
  Sex: Female
  Weight: 63.636 kg

DRUGS (18)
  1. CYTOXAN [Concomitant]
     Dosage: 2 COURSES
  2. IMURAN [Concomitant]
  3. LOTENSIN [Concomitant]
  4. NEULASTA [Concomitant]
     Dates: start: 20051216
  5. LOVENOX [Concomitant]
  6. CALCIUM CARBONATE [Concomitant]
  7. DIFLUCAN [Concomitant]
     Dates: start: 20051201
  8. KLONOPIN [Concomitant]
  9. PROCRIT [Concomitant]
     Dosage: 20,000 UNITS PER WEEK
  10. MAGNEVIST [Suspect]
     Indication: NUCLEAR MAGNETIC RESONANCE IMAGING BRAIN
     Dates: start: 20051230, end: 20051230
  11. HYDRALAZINE HCL [Concomitant]
  12. LOPRESSOR [Concomitant]
  13. MAGNEVIST [Suspect]
  14. GADOLINIUM IN UNSPECIFIED DRUG [Suspect]
     Dosage: 0.2MMOL/KG (RENAL MRA PROTOCOL PER RADIOLOGY REPORT)
     Route: 042
     Dates: start: 20051230, end: 20051230
  15. PLAQUENIL [Concomitant]
  16. SOLU-MEDROL [Concomitant]
  17. PREDNISONE [Concomitant]
  18. LEXAPRO [Concomitant]

REACTIONS (10)
  - OEDEMA PERIPHERAL [None]
  - RASH [None]
  - NEPHROGENIC SYSTEMIC FIBROSIS [None]
  - PAIN IN EXTREMITY [None]
  - SKIN HYPERTROPHY [None]
  - JOINT RANGE OF MOTION DECREASED [None]
  - ERYTHEMA [None]
  - ARTHRALGIA [None]
  - ABASIA [None]
  - SKIN INDURATION [None]
